FAERS Safety Report 6920532-1 (Version None)
Quarter: 2010Q3

REPORT INFORMATION
  Report Type: 
  Country: None (occurrence: None)
  Receive Date: 20100812
  Receipt Date: 20100805
  Transmission Date: 20110219
  Serious: No
  Sender: FDA-Public Use
  Company Number: US-BIOGENIDEC-2010BI027250

PATIENT
  Age: 49 Year
  Sex: Female

DRUGS (1)
  1. TYSABRI [Suspect]
     Indication: MULTIPLE SCLEROSIS
     Route: 042
     Dates: start: 20091109

REACTIONS (8)
  - APHAGIA [None]
  - DYSPHAGIA [None]
  - FEELING COLD [None]
  - HEADACHE [None]
  - MEMORY IMPAIRMENT [None]
  - NAUSEA [None]
  - PAIN IN EXTREMITY [None]
  - STRESS [None]
